FAERS Safety Report 11024657 (Version 1)
Quarter: 2015Q2

REPORT INFORMATION
  Report Type: Report from Study
  Country: CO (occurrence: CO)
  Receive Date: 20150414
  Receipt Date: 20150414
  Transmission Date: 20150821
  Serious: Yes (Death)
  Sender: FDA-Public Use
  Company Number: CO-AMGEN-COLSL2015034899

PATIENT
  Age: 59 Year
  Sex: Male
  Weight: 53 kg

DRUGS (1)
  1. VECTIBIX [Suspect]
     Active Substance: PANITUMUMAB
     Indication: COLORECTAL CANCER METASTATIC
     Dosage: 318 MG, EVERY 15 DAYS
     Route: 065
     Dates: start: 20140627, end: 20150126

REACTIONS (1)
  - Death [Fatal]

NARRATIVE: CASE EVENT DATE: 20150328
